FAERS Safety Report 18483649 (Version 3)
Quarter: 2021Q1

REPORT INFORMATION
  Report Type: Spontaneous
  Country: IT (occurrence: IT)
  Receive Date: 20201109
  Receipt Date: 20210104
  Transmission Date: 20210419
  Serious: Yes (Hospitalization, Other)
  Sender: FDA-Public Use
  Company Number: IT-AUROBINDO-AUR-APL-2017-24063

PATIENT
  Age: 6 Year
  Sex: Female

DRUGS (4)
  1. AMOXICILLIN. [Suspect]
     Active Substance: AMOXICILLIN
     Dosage: 350 MILLIGRAM
     Route: 048
  2. HYDROCORTISONE. [Suspect]
     Active Substance: HYDROCORTISONE
     Indication: PRODUCT USED FOR UNKNOWN INDICATION
     Dosage: UNK
     Route: 042
  3. AMOXICILLIN. [Suspect]
     Active Substance: AMOXICILLIN
     Dosage: UNK
     Route: 048
  4. AMOXICILLIN. [Suspect]
     Active Substance: AMOXICILLIN
     Indication: PRODUCT USED FOR UNKNOWN INDICATION
     Dosage: 50 MILLIGRAM/KILOGRAM, ONCE A DAY (ADMINISTERED EVERY 30 MINUTES)
     Route: 048

REACTIONS (10)
  - Diarrhoea [Unknown]
  - Methaemoglobinaemia [Unknown]
  - Enterocolitis [Recovered/Resolved]
  - Rash morbilliform [Unknown]
  - Pallor [Unknown]
  - Neutrophilia [Unknown]
  - Vomiting [Recovered/Resolved]
  - Drug hypersensitivity [Unknown]
  - Lethargy [Recovered/Resolved]
  - White blood cell count increased [Unknown]
